FAERS Safety Report 8371143-5 (Version None)
Quarter: 2012Q1

REPORT INFORMATION
  Report Type: 
  Country: None (occurrence: None)
  Receive Date: 20120323
  Receipt Date: 20120323
  Transmission Date: 20120608
  Serious: Yes (Hospitalization)
  Sender: FDA-Public Use
  Company Number: 163-21880-11012941

PATIENT
  Age: 73 Year
  Sex: Male

DRUGS (8)
  1. DIVALPROX DR (VALPROATE SEMISODIUM) [Concomitant]
  2. DEXAMETHASONE [Suspect]
     Indication: PRODUCT USED FOR UNKNOWN INDICATION
  3. LANTUS [Concomitant]
  4. FINASTERIDE [Concomitant]
  5. FAMOTIDINE [Concomitant]
  6. SEROQUEL [Concomitant]
  7. REVLIMID [Suspect]
     Indication: MULTIPLE MYELOMA
     Dosage: DAILY X 21 DAYS, OFF 7 DAYS, PO
     Route: 048
     Dates: start: 20100730
  8. NOVOLOG [Concomitant]

REACTIONS (1)
  - BLOOD GLUCOSE INCREASED [None]
